FAERS Safety Report 7681747-0 (Version None)
Quarter: 2011Q3

REPORT INFORMATION
  Report Type: 
  Country: None (occurrence: None)
  Receive Date: 20110812
  Receipt Date: 20110803
  Transmission Date: 20111222
  Serious: Yes (Hospitalization, Other)
  Sender: FDA-Public Use
  Company Number: PHHY2011RO70293

PATIENT
  Age: 62 Year
  Sex: Female

DRUGS (4)
  1. SILYBUM MARIANUM [Concomitant]
     Dosage: 150 MG, TID
  2. PERINDOPRIL [Suspect]
     Dosage: 4 MG, BID
  3. KETOPROFEN [Suspect]
     Dosage: 100 MG, UNK
  4. HERBAL PREPARATION [Concomitant]
     Dosage: UNK

REACTIONS (10)
  - ASTHENIA [None]
  - DEHYDRATION [None]
  - URINARY TRACT INFECTION [None]
  - RENAL FAILURE ACUTE [None]
  - BLOOD POTASSIUM INCREASED [None]
  - NAUSEA [None]
  - DECREASED APPETITE [None]
  - POLLAKIURIA [None]
  - OLIGURIA [None]
  - DYSURIA [None]
